FAERS Safety Report 25361046 (Version 1)
Quarter: 2025Q2

REPORT INFORMATION
  Report Type: Spontaneous
  Country: JP (occurrence: JP)
  Receive Date: 20250527
  Receipt Date: 20250527
  Transmission Date: 20250716
  Serious: Yes (Hospitalization, Other)
  Sender: MERCK SHARP & DOHME LLC
  Company Number: JP-009507513-2289395

PATIENT
  Age: 8 Decade
  Sex: Male

DRUGS (2)
  1. KEYTRUDA [Suspect]
     Active Substance: PEMBROLIZUMAB
     Indication: Renal cell carcinoma stage IV
     Dates: start: 20240913, end: 20241115
  2. LENVIMA [Suspect]
     Active Substance: LENVATINIB
     Indication: Renal cell carcinoma stage IV
     Dosage: STRENGTH: 10 MG, 20 MG ONCE EVERY DAY.
     Route: 048
     Dates: start: 20240913

REACTIONS (5)
  - Pneumonia [Not Recovered/Not Resolved]
  - Therapy partial responder [Unknown]
  - Renal impairment [Unknown]
  - Acute respiratory distress syndrome [Unknown]
  - Blood beta-D-glucan increased [Unknown]

NARRATIVE: CASE EVENT DATE: 20241025
